FAERS Safety Report 17875001 (Version 22)
Quarter: 2025Q4

REPORT INFORMATION
  Report Type: Spontaneous
  Country: US (occurrence: US)
  Receive Date: 20200609
  Receipt Date: 20251124
  Transmission Date: 20260118
  Serious: No
  Sender: PFIZER
  Company Number: US-PFIZER INC-2020223417

PATIENT
  Age: 66 Year
  Sex: Female
  Weight: 57.15 kg

DRUGS (3)
  1. PREMPRO [Suspect]
     Active Substance: ESTROGENS, CONJUGATED\MEDROXYPROGESTERONE ACETATE
     Indication: Hormone replacement therapy
     Dosage: 0.3 MG, ONCE DAILY
     Route: 048
  2. PREMPRO [Suspect]
     Active Substance: ESTROGENS, CONJUGATED\MEDROXYPROGESTERONE ACETATE
     Indication: Menopause
     Dosage: 0.3 MG, ALTERNATE DAY (0.3 MG ONCE EVERY OTHER NIGHT)
  3. PREMPRO [Suspect]
     Active Substance: ESTROGENS, CONJUGATED\MEDROXYPROGESTERONE ACETATE
     Dosage: 0.3 MG

REACTIONS (14)
  - Back injury [Unknown]
  - Disturbance in attention [Unknown]
  - Anxiety [Unknown]
  - Body height decreased [Unknown]
  - Overweight [Unknown]
  - Vertigo [Unknown]
  - Oral herpes [Unknown]
  - Nervousness [Unknown]
  - Psychiatric symptom [Unknown]
  - Insomnia [Unknown]
  - Fatigue [Unknown]
  - Stress [Unknown]
  - Arthritis [Unknown]
  - Intentional product misuse [Unknown]
